FAERS Safety Report 8304492-7 (Version None)
Quarter: 2012Q2

REPORT INFORMATION
  Report Type: 
  Country: None (occurrence: None)
  Receive Date: 20120423
  Receipt Date: 20120412
  Transmission Date: 20120825
  Serious: Yes (Other)
  Sender: FDA-Public Use
  Company Number: US-JNJFOC-20120407432

PATIENT
  Age: 71 Year
  Sex: Female
  Weight: 90.27 kg

DRUGS (2)
  1. UNKNOWN MEDICATION [Concomitant]
     Route: 065
  2. NEUTROGENA T/GEL THERAPEUTIC SHAMPOO ORIGINAL [Suspect]
     Indication: PSORIASIS
     Dosage: ABOUT A QUATER SIZED AMOUNT
     Route: 061

REACTIONS (2)
  - HAIR DISORDER [None]
  - PSORIASIS [None]
